FAERS Safety Report 9331198 (Version 11)
Quarter: 2013Q4

REPORT INFORMATION
  Report Type: Spontaneous
  Country: CA (occurrence: CA)
  Receive Date: 20130605
  Receipt Date: 20131225
  Transmission Date: 20140711
  Serious: Yes (Life-Threatening, Hospitalization)
  Sender: FDA-Public Use
  Company Number: CA-AMGEN-CANSP2013039312

PATIENT
  Age: 69 Year
  Sex: Female
  Weight: 65.9 kg

DRUGS (21)
  1. NEUPOGEN [Suspect]
     Indication: PRODUCT USED FOR UNKNOWN INDICATION
     Dosage: 300 MUG, DAILY
     Route: 058
     Dates: start: 20130422, end: 20130510
  2. NEUPOGEN [Suspect]
     Dosage: 300 MUG, 10 DAYS
     Route: 065
     Dates: start: 20130501, end: 20130510
  3. DOCETAXEL [Suspect]
     Indication: PRODUCT USED FOR UNKNOWN INDICATION
     Dosage: 172 MG, UNK
     Route: 065
     Dates: start: 20130410, end: 20130410
  4. DOCETAXEL [Suspect]
     Dosage: 134 MG, 1 IN 3 WEEKS
     Route: 065
     Dates: start: 20130501, end: 20130501
  5. TRASTUZUMAB [Concomitant]
     Indication: HER-2 POSITIVE BREAST CANCER
     Dosage: 600 MG, 1 IN 3 WK
     Route: 058
     Dates: start: 20130410
  6. TYLENOL                            /00020001/ [Concomitant]
     Dosage: 325 TO 650 1-2 TAB. AS NEEDED PER MG
     Route: 048
     Dates: start: 20100101
  7. DECADRON                           /00016001/ [Concomitant]
     Dosage: 8 MG, QD DAY BEFORE CHEMO, DAY OF CHEMO AND DAY AFTER CHEMO
     Dates: start: 20121215
  8. ZOFRAN                             /00955302/ [Concomitant]
     Dosage: 16 MG, PRE CHEMO EACH CYCLE SINGLE DOSE
     Dates: start: 20121215
  9. IMOVANE [Concomitant]
     Dosage: 7.5 MG, 1 IN 1 AS NEEDED
     Dates: start: 20130115
  10. IMOVANE [Concomitant]
     Dosage: 3.75 - 7.5 MG, UNK
     Dates: start: 20130512
  11. MAXERAN [Concomitant]
     Dosage: 10 MG, 1 IN 1 AS REQUIRED
     Dates: start: 20130116
  12. OXYCOCET [Concomitant]
     Dosage: 1 TO 2 TABLETS AS NEEDED
     Route: 048
     Dates: start: 20130413
  13. OXYCOCET [Concomitant]
     Dosage: 5 MG, 1 IN 6 HOURS (5/325)
     Dates: start: 20130415
  14. CLEAR EYES ACR [Concomitant]
     Dosage: 1-2 GTT PER DROPS
     Dates: start: 20130207
  15. MORPHINE                           /00036302/ [Concomitant]
     Dosage: 0.5 MG, 4 IN 1 D
     Dates: start: 20130417, end: 20130426
  16. MORPHINE                           /00036302/ [Concomitant]
     Dosage: 2.5 MG, DAILY
     Dates: start: 20130511, end: 20130511
  17. ASA [Concomitant]
     Dosage: 81 MG, UNK
     Dates: start: 20130419, end: 20130421
  18. NYSTATIN [Concomitant]
     Dosage: 10000 UNIT, 1 IN 6 HR
     Dates: start: 20130417
  19. COLACE [Concomitant]
     Dosage: 100 MG, UNK
     Dates: start: 20130416
  20. POTASSIUM [Concomitant]
     Dosage: UNK
  21. ONDANSETRON HYDROCHLORIDE [Concomitant]
     Dosage: UNK, PRE CHEMO

REACTIONS (2)
  - Pyrexia [Recovered/Resolved]
  - Febrile neutropenia [Recovered/Resolved]
